FAERS Safety Report 9191744 (Version 1)
Quarter: 2013Q1

REPORT INFORMATION
  Report Type: Spontaneous
  Country: US (occurrence: US)
  Receive Date: 20130326
  Receipt Date: 20130326
  Transmission Date: 20140127
  Serious: Yes (Hospitalization)
  Sender: FDA-Public Use
  Company Number: US-AMGEN-USASP2013020806

PATIENT
  Age: 50 Year
  Sex: Male

DRUGS (2)
  1. ENBREL [Suspect]
     Indication: PSORIATIC ARTHROPATHY
     Dosage: 50 MG, QWK
     Dates: start: 20121002
  2. CELEBREX [Concomitant]
     Dosage: UNK

REACTIONS (8)
  - Biliary tract disorder [Recovered/Resolved]
  - Appendicitis [Recovered/Resolved]
  - Foot deformity [Not Recovered/Not Resolved]
  - Tonsillar inflammation [Recovered/Resolved]
  - Tonsillar haemorrhage [Recovered/Resolved]
  - Inflammation [Not Recovered/Not Resolved]
  - Nose deformity [Not Recovered/Not Resolved]
  - Haematochezia [Not Recovered/Not Resolved]
